FAERS Safety Report 5265288-6 (Version None)
Quarter: 2007Q1

REPORT INFORMATION
  Report Type: 
  Country: None (occurrence: None)
  Receive Date: 20061214
  Receipt Date: 20050802
  Transmission Date: 20070707
  Serious: Yes (Other)
  Sender: FDA-Public Use
  Company Number: 2005UW11349

PATIENT
  Sex: Male
  Weight: 72.574 kg

DRUGS (1)
  1. PULMICORT RESPULES [Suspect]
     Indication: ASTHMA
     Dosage: 0.5 MG IH
     Route: 055

REACTIONS (3)
  - BACK PAIN [None]
  - INTENTIONAL DRUG MISUSE [None]
  - MUSCULOSKELETAL CHEST PAIN [None]
